FAERS Safety Report 5099914-1 (Version None)
Quarter: 2006Q3

REPORT INFORMATION
  Report Type: 
  Country: None (occurrence: None)
  Receive Date: 20060908
  Receipt Date: 20060816
  Transmission Date: 20061208
  Serious: Yes (Hospitalization)
  Sender: FDA-Public Use
  Company Number: FRWYE717216AUG06

PATIENT
  Age: 57 Year
  Sex: Female

DRUGS (4)
  1. ENBREL [Suspect]
     Indication: RHEUMATOID ARTHRITIS
     Route: 058
     Dates: start: 20040615, end: 20050414
  2. ENBREL [Suspect]
     Dosage: UNKNOWN
     Route: 058
  3. HYDROCORTISONE [Concomitant]
     Route: 048
  4. VOLTAREN [Concomitant]
     Route: 048
     Dates: start: 20041201

REACTIONS (3)
  - BURSITIS INFECTIVE [None]
  - CANDIDA SEPSIS [None]
  - CYSTIC LYMPHANGIOMA [None]
